FAERS Safety Report 5587931-4 (Version None)
Quarter: 2008Q1

REPORT INFORMATION
  Report Type: 
  Country: None (occurrence: None)
  Receive Date: 20080111
  Receipt Date: 20071023
  Transmission Date: 20080703
  Serious: No
  Sender: FDA-Public Use
  Company Number: US-KINGPHARMUSA00001-K200701381

PATIENT

DRUGS (3)
  1. INTAL [Suspect]
     Indication: ASTHMA
  2. SINGULAIR [Concomitant]
     Indication: ASTHMA
  3. ALBUTEROL [Concomitant]
     Indication: ASTHMA
     Dosage: AS NEEDED AND BEFORE RACES

REACTIONS (1)
  - DRUG INEFFECTIVE [None]
